FAERS Safety Report 7368799-2 (Version None)
Quarter: 2011Q1

REPORT INFORMATION
  Report Type: 
  Country: None (occurrence: None)
  Receive Date: 20110323
  Receipt Date: 20110314
  Transmission Date: 20110831
  Serious: Yes (Other)
  Sender: FDA-Public Use
  Company Number: CA-SANOFI-AVENTIS-2011SA016809

PATIENT
  Age: 63 Year
  Sex: Male

DRUGS (9)
  1. BLINDED THERAPY [Suspect]
     Indication: PROSTATE CANCER
     Route: 048
     Dates: start: 20100527, end: 20101020
  2. DILAUDID [Concomitant]
     Dates: start: 20100614, end: 20101020
  3. ZOLADEX [Concomitant]
     Dates: start: 20100121
  4. CELEBREX [Concomitant]
     Dates: start: 20100401
  5. DOCETAXEL [Suspect]
     Route: 041
     Dates: start: 20101021, end: 20101021
  6. PREDNISONE [Suspect]
     Indication: PROSTATE CANCER
     Route: 048
     Dates: start: 20100527
  7. DOCETAXEL [Suspect]
     Indication: PROSTATE CANCER
     Route: 041
     Dates: start: 20100527, end: 20100527
  8. NASACORT [Concomitant]
     Dates: start: 20090304
  9. XYLOCAINE [Concomitant]
     Dates: start: 20100629

REACTIONS (1)
  - PATHOLOGICAL FRACTURE [None]
